FAERS Safety Report 9659568 (Version 2)
Quarter: 2013Q4

REPORT INFORMATION
  Report Type: Spontaneous
  Country: US (occurrence: US)
  Receive Date: 20131031
  Receipt Date: 20131105
  Transmission Date: 20140711
  Serious: Yes (Hospitalization)
  Sender: FDA-Public Use
  Company Number: US-TEVA-441621USA

PATIENT
  Age: 21 Year
  Sex: Female
  Weight: 72.64 kg

DRUGS (1)
  1. PARAGARD 380A [Suspect]
     Indication: CONTRACEPTION
     Route: 015
     Dates: start: 20131018, end: 20131018

REACTIONS (3)
  - Dysmenorrhoea [Recovered/Resolved]
  - Vaginal haemorrhage [Recovered/Resolved]
  - Device difficult to use [Unknown]
